FAERS Safety Report 8044771-4 (Version None)
Quarter: 2012Q1

REPORT INFORMATION
  Report Type: 
  Country: None (occurrence: None)
  Receive Date: 20120113
  Receipt Date: 20120110
  Transmission Date: 20120608
  Serious: Yes (Death, Hospitalization)
  Sender: FDA-Public Use
  Company Number: US-ROCHE-1027773

PATIENT
  Sex: Male
  Weight: 73.548 kg

DRUGS (6)
  1. LOVASTATIN [Concomitant]
     Indication: HYPERTENSION
     Route: 048
  2. ZELBORAF [Suspect]
     Indication: METASTATIC MALIGNANT MELANOMA
     Route: 048
     Dates: start: 20110926, end: 20111025
  3. METOPROLOL [Concomitant]
     Indication: CORONARY ARTERY DISEASE
     Route: 048
  4. LANOXIN [Concomitant]
     Indication: ARRHYTHMIA
     Route: 048
  5. FINASTERIDE [Concomitant]
     Indication: URINARY RETENTION
     Route: 048
  6. PAROXETINE [Concomitant]
     Route: 048

REACTIONS (1)
  - METASTATIC MALIGNANT MELANOMA [None]
